FAERS Safety Report 25100536 (Version 2)
Quarter: 2025Q1

REPORT INFORMATION
  Report Type: Spontaneous
  Country: KW (occurrence: KW)
  Receive Date: 20250320
  Receipt Date: 20250326
  Transmission Date: 20250408
  Serious: No
  Sender: SANDOZ
  Company Number: KW-SANDOZ-SDZ2025KW016756

PATIENT

DRUGS (1)
  1. HYRIMOZ [Suspect]
     Active Substance: ADALIMUMAB-ADAZ
     Indication: Hidradenitis
     Route: 065
     Dates: start: 202409

REACTIONS (3)
  - Hidradenitis [Unknown]
  - Condition aggravated [Unknown]
  - Product substitution issue [Unknown]
